FAERS Safety Report 7459056-4 (Version None)
Quarter: 2011Q2

REPORT INFORMATION
  Report Type: 
  Country: None (occurrence: None)
  Receive Date: 20110505
  Receipt Date: 20110428
  Transmission Date: 20111010
  Serious: No
  Sender: FDA-Public Use
  Company Number: US-BIOGENIDEC-2010BI045124

PATIENT
  Age: 49 Year
  Sex: Female

DRUGS (2)
  1. AVONEX [Concomitant]
     Indication: MULTIPLE SCLEROSIS
     Route: 030
     Dates: start: 20091101
  2. TYSABRI [Suspect]
     Indication: MULTIPLE SCLEROSIS
     Route: 042
     Dates: start: 20091125, end: 20110222

REACTIONS (6)
  - DRUG INEFFECTIVE [None]
  - FALL [None]
  - MULTIPLE SCLEROSIS RELAPSE [None]
  - DYSSTASIA [None]
  - MOBILITY DECREASED [None]
  - PALPITATIONS [None]
